FAERS Safety Report 6102590-X (Version None)
Quarter: 2009Q1

REPORT INFORMATION
  Report Type: 
  Country: None (occurrence: None)
  Receive Date: 20090304
  Receipt Date: 20080915
  Transmission Date: 20090719
  Serious: No
  Sender: FDA-Public Use
  Company Number: A0747492A

PATIENT
  Age: 45 Year
  Sex: Male

DRUGS (8)
  1. REQUIP [Suspect]
     Indication: RESTLESS LEGS SYNDROME
     Dosage: 6MG PER DAY
     Route: 048
     Dates: start: 20050101, end: 20080601
  2. ROPINIROLE [Suspect]
     Indication: RESTLESS LEGS SYNDROME
     Dosage: 6MG PER DAY
     Dates: start: 20080601
  3. ZOLOFT [Concomitant]
  4. METFORMIN [Concomitant]
  5. LIPITOR [Concomitant]
  6. AVAPRO [Concomitant]
  7. LANTUS [Concomitant]
  8. NOVOLOG [Concomitant]

REACTIONS (1)
  - DRUG INEFFECTIVE [None]
